FAERS Safety Report 5081406-7 (Version None)
Quarter: 2006Q3

REPORT INFORMATION
  Report Type: 
  Country: None (occurrence: None)
  Receive Date: 20060811
  Receipt Date: 20060807
  Transmission Date: 20061208
  Serious: Yes (Hospitalization)
  Sender: FDA-Public Use
  Company Number: 146986USA

PATIENT
  Age: 62 Year
  Sex: Female

DRUGS (1)
  1. COPAXONE [Suspect]
     Indication: MULTIPLE SCLEROSIS
     Dosage: 20 MILLIGRAM QD SUBCUTANEOUS
     Route: 058
     Dates: start: 19930101, end: 20050901

REACTIONS (3)
  - CARDIAC VALVE DISEASE [None]
  - DYSPNOEA [None]
  - HEART VALVE REPLACEMENT [None]
